FAERS Safety Report 23541172 (Version 2)
Quarter: 2024Q1

REPORT INFORMATION
  Report Type: Spontaneous
  Country: US (occurrence: US)
  Receive Date: 20240219
  Receipt Date: 20240220
  Transmission Date: 20240410
  Serious: Yes (Other)
  Sender: FDA-Public Use
  Company Number: US-Stemline Therapeutics, Inc.-2024ST000276

PATIENT
  Age: 46 Year
  Sex: Female

DRUGS (1)
  1. ORSERDU [Suspect]
     Active Substance: ELACESTRANT
     Indication: Product used for unknown indication
     Route: 048
     Dates: start: 20230902

REACTIONS (6)
  - Loss of consciousness [Unknown]
  - Product use issue [Unknown]
  - Feeling abnormal [Unknown]
  - Influenza [Unknown]
  - Heart rate increased [Unknown]
  - Gait disturbance [Unknown]
